FAERS Safety Report 24705775 (Version 1)
Quarter: 2024Q4

REPORT INFORMATION
  Report Type: Report from Study
  Country: CN (occurrence: CN)
  Receive Date: 20241206
  Receipt Date: 20241206
  Transmission Date: 20250115
  Serious: Yes (Death)
  Sender: PFIZER
  Company Number: CN-PFIZER INC-PV202400158927

PATIENT

DRUGS (4)
  1. IDARUBICIN HYDROCHLORIDE [Suspect]
     Active Substance: IDARUBICIN HYDROCHLORIDE
     Indication: Acute promyelocytic leukaemia
     Dosage: UNK
  2. MERCAPTOPURINE [Concomitant]
     Active Substance: MERCAPTOPURINE
     Indication: Acute promyelocytic leukaemia
     Dosage: UNK
  3. METHOTREXATE [Concomitant]
     Active Substance: METHOTREXATE
     Indication: Acute promyelocytic leukaemia
     Dosage: UNK
  4. TRETINOIN [Concomitant]
     Active Substance: TRETINOIN
     Indication: Acute promyelocytic leukaemia

REACTIONS (1)
  - Cardiotoxicity [Fatal]
